FAERS Safety Report 12585794 (Version 1)
Quarter: 2016Q3

REPORT INFORMATION
  Report Type: Spontaneous
  Country: US (occurrence: US)
  Receive Date: 20160725
  Receipt Date: 20160725
  Transmission Date: 20161109
  Serious: No
  Sender: FDA-Public Use
  Company Number: US-NOVEN PHARMACEUTICALS, INC.-US2016001013

PATIENT

DRUGS (2)
  1. BRISDELLE [Suspect]
     Active Substance: PAROXETINE MESYLATE
     Indication: HOT FLUSH
     Dosage: 7.5 MG, UNKNOWN
     Route: 048
     Dates: start: 201511
  2. BRISDELLE [Suspect]
     Active Substance: PAROXETINE MESYLATE
     Indication: NIGHT SWEATS

REACTIONS (2)
  - Hot flush [Not Recovered/Not Resolved]
  - Drug ineffective [Not Recovered/Not Resolved]

NARRATIVE: CASE EVENT DATE: 201603
